FAERS Safety Report 5338230-7 (Version None)
Quarter: 2007Q2

REPORT INFORMATION
  Report Type: 
  Country: None (occurrence: None)
  Receive Date: 20070327
  Receipt Date: 20070222
  Transmission Date: 20071010
  Serious: No
  Sender: FDA-Public Use
  Company Number: 237095

PATIENT
  Age: 53 Year
  Sex: Female

DRUGS (4)
  1. AVASTIN [Suspect]
     Indication: COLORECTAL CANCER METASTATIC
     Dates: start: 20061001
  2. OXALIPLATIN [Concomitant]
  3. FLUOROURACIL [Concomitant]
  4. LEUCOVORIN CALCIUM [Concomitant]

REACTIONS (6)
  - ASTHENIA [None]
  - BACK PAIN [None]
  - DIPLOPIA [None]
  - FALL [None]
  - MEMORY IMPAIRMENT [None]
  - NECK PAIN [None]
